FAERS Safety Report 4602891-8 (Version None)
Quarter: 2005Q1

REPORT INFORMATION
  Report Type: 
  Country: None (occurrence: None)
  Receive Date: 20050307
  Receipt Date: 20050218
  Transmission Date: 20050727
  Serious: Yes (Hospitalization)
  Sender: FDA-Public Use
  Company Number: 212776

PATIENT
  Age: 69 Year
  Sex: Male
  Weight: 64 kg

DRUGS (3)
  1. AVASTIN [Suspect]
     Indication: COLORECTAL CANCER METASTATIC
     Dosage: 325 MG, Q2W, INTRAVENOUS
     Route: 042
     Dates: start: 20050215
  2. FLUOROURACIL [Suspect]
     Dates: start: 20050215, end: 20050216
  3. WARFARIN SODIUM [Concomitant]

REACTIONS (4)
  - C-REACTIVE PROTEIN INCREASED [None]
  - CENTRAL LINE INFECTION [None]
  - NEUTROPHIL COUNT INCREASED [None]
  - PYREXIA [None]
